FAERS Safety Report 7544854-9 (Version None)
Quarter: 2011Q2

REPORT INFORMATION
  Report Type: 
  Country: None (occurrence: None)
  Receive Date: 20110614
  Receipt Date: 20080121
  Transmission Date: 20111010
  Serious: Yes (Hospitalization, Other)
  Sender: FDA-Public Use
  Company Number: US-BAYER-200812243NA

PATIENT
  Age: 74 Year
  Sex: Male
  Weight: 117 kg

DRUGS (28)
  1. DIOCTYL SODIUM SULFOSUCCINATE [Concomitant]
     Dosage: 100 MG, UNK
     Route: 048
     Dates: start: 20070912
  2. MUPIROCIN [Concomitant]
     Dosage: UNK
     Dates: start: 20070913, end: 20070913
  3. XYLOCAINE [Concomitant]
     Dosage: UNK
     Dates: start: 20070913, end: 20070913
  4. COREG [Concomitant]
     Dosage: 12.5 MG, UNK
     Route: 048
  5. LISINOPRIL [Concomitant]
     Dosage: 10 MG, UNK
     Route: 048
  6. METOPROLOL SUCCINATE [Concomitant]
     Dosage: 50 MG, UNK
     Route: 048
  7. KETAMINE HCL [Concomitant]
     Dosage: UNK
     Dates: start: 20070913, end: 20070913
  8. NIPRIDE [Concomitant]
     Dosage: UNK
     Dates: start: 20070913, end: 20070913
  9. CALCIUM CHLORIDE [Concomitant]
     Dosage: UNK
     Dates: start: 20070913, end: 20070913
  10. NITROGLYCERIN [Concomitant]
     Dosage: 0.4 MG, UNK
     Route: 060
  11. INSULIN [Concomitant]
     Dosage: UNK
     Dates: start: 20070913, end: 20070913
  12. VERSED [Concomitant]
     Dosage: UNK
     Dates: start: 20070913, end: 20070913
  13. FENTANYL [Concomitant]
     Dosage: UNK
     Dates: start: 20070913, end: 20070913
  14. FENOLDOPAM [Concomitant]
     Dosage: UNK
     Dates: start: 20070913, end: 20070913
  15. PROTAMINE SULFATE [Concomitant]
     Dosage: 450 MG, UNK
     Dates: start: 20070913, end: 20070913
  16. NITROGLYCERIN [Concomitant]
     Dosage: UNK
     Dates: start: 20070913, end: 20070913
  17. ACETYLSALICYLIC ACID SRT [Concomitant]
     Dosage: 325 MG, UNK
     Route: 048
  18. RESTORIL [Concomitant]
     Indication: SLEEP DISORDER THERAPY
     Dosage: 15 MG, UNK
     Route: 048
  19. PEPCID [Concomitant]
     Dosage: 20 MG, UNK
     Route: 048
     Dates: start: 20070913, end: 20070913
  20. HEPARIN [Concomitant]
     Dosage: UNK
     Dates: start: 20070913, end: 20070913
  21. TRASYLOL [Suspect]
     Indication: CORONARY ARTERY BYPASS
     Dosage: 200 ML LOADING DOSE FOLLOWED BY INFUSION
     Route: 042
     Dates: start: 20070913, end: 20070913
  22. INSULIN [Concomitant]
     Dosage: VARIED DOSING
     Route: 058
  23. CEFAZOLIN [Concomitant]
     Dosage: 2 G, UNK
     Route: 042
     Dates: start: 20070913, end: 20070913
  24. PAPAVERINE [Concomitant]
     Dosage: UNK
     Dates: start: 20070913, end: 20070913
  25. SODIUM BICARBONATE [Concomitant]
     Dosage: UNK
     Dates: start: 20070913, end: 20070913
  26. LIDOCAINE [Concomitant]
     Dosage: 100 MG, UNK
     Dates: start: 20070913, end: 20070913
  27. DECADRON [Concomitant]
     Dosage: UNK
     Dates: start: 20070913, end: 20070913
  28. PLASMALYTE [GLUCOSE,POTASSIUM CHLORIDE] [Concomitant]
     Dosage: 1 LITER, UNK
     Dates: start: 20070913, end: 20070913

REACTIONS (10)
  - EMOTIONAL DISTRESS [None]
  - PAIN [None]
  - DEPRESSION [None]
  - FEAR [None]
  - CEREBROVASCULAR ACCIDENT [None]
  - INJURY [None]
  - ANXIETY [None]
  - ADVERSE EVENT [None]
  - ANHEDONIA [None]
  - RENAL FAILURE [None]
